FAERS Safety Report 9836967 (Version 1)
Quarter: 2013Q4

REPORT INFORMATION
  Report Type: Spontaneous
  Country: US (occurrence: None)
  Receive Date: 20131120
  Receipt Date: 20131120
  Transmission Date: 20140711
  Serious: No
  Sender: FDA-Public Use
  Company Number: 1000048949

PATIENT
  Age: 45 Year
  Sex: Female

DRUGS (6)
  1. VIIBRYD (VILAZODONE HYDROCHLORIDE) (10 MILLIGRAM, TABLETS) [Suspect]
     Indication: DEPRESSION
     Route: 048
     Dates: start: 201301, end: 2013
  2. LEVOTHYROXINE (LEVOTHYROXINE SODIUM) [Concomitant]
  3. INSULIN (INSULIN) [Concomitant]
  4. WELLBUTRIN (BUPROPION HYDROCHLORIDE) [Concomitant]
  5. CLONAZEPAM (CLONAZEPAM) [Concomitant]
  6. VYVANSE (LISDEXAMFETAMINE MESILATE) [Concomitant]

REACTIONS (2)
  - Dizziness [None]
  - Feeling drunk [None]
